FAERS Safety Report 11499446 (Version 1)
Quarter: 2015Q3

REPORT INFORMATION
  Report Type: Spontaneous
  Country: US (occurrence: US)
  Receive Date: 20150914
  Receipt Date: 20150914
  Transmission Date: 20151125
  Serious: No
  Sender: FDA-Public Use
  Company Number: US-TEVA-582838USA

PATIENT
  Sex: Female

DRUGS (3)
  1. PANTOPRAZOLE [Suspect]
     Active Substance: PANTOPRAZOLE SODIUM
     Route: 065
  2. AVAPRO [Suspect]
     Active Substance: IRBESARTAN
     Route: 065
  3. ATIVAN [Suspect]
     Active Substance: LORAZEPAM
     Route: 065

REACTIONS (4)
  - Lactose intolerance [Unknown]
  - Diarrhoea [Unknown]
  - Muscle spasms [Unknown]
  - Flatulence [Unknown]
